FAERS Safety Report 18967065 (Version 1)
Quarter: 2021Q1

REPORT INFORMATION
  Report Type: Spontaneous
  Country: US (occurrence: US)
  Receive Date: 20210304
  Receipt Date: 20210304
  Transmission Date: 20210420
  Serious: No
  Sender: FDA-Public Use
  Company Number: US-BIOVITRUM-2021US2191

PATIENT
  Sex: Female
  Weight: 11 kg

DRUGS (2)
  1. SYNAGIS [Suspect]
     Active Substance: PALIVIZUMAB
     Indication: CONGENITAL PULMONARY VALVE ATRESIA
     Dosage: 100MG/ML VIAL LIQUID
     Route: 030
  2. SYNAGIS [Suspect]
     Active Substance: PALIVIZUMAB
     Indication: TRICUSPID VALVE DISEASE

REACTIONS (1)
  - Illness [Unknown]
